FAERS Safety Report 22379031 (Version 2)
Quarter: 2023Q2

REPORT INFORMATION
  Report Type: Report from Study
  Country: US (occurrence: US)
  Receive Date: 20230529
  Receipt Date: 20230530
  Transmission Date: 20230721
  Serious: No
  Sender: FDA-Public Use
  Company Number: US-002147023-NVSC2022US303956

PATIENT
  Sex: Female

DRUGS (3)
  1. NAPROXEN [Suspect]
     Active Substance: NAPROXEN
     Indication: Ankylosing spondylitis
     Dosage: UNK
     Route: 065
  2. MELOXICAM [Suspect]
     Active Substance: MELOXICAM
     Indication: Ankylosing spondylitis
     Dosage: UNK
     Route: 065
  3. SULFASALAZINE [Suspect]
     Active Substance: SULFASALAZINE
     Indication: Ankylosing spondylitis
     Dosage: UNK
     Route: 065

REACTIONS (4)
  - Drug hypersensitivity [Unknown]
  - Drug intolerance [Unknown]
  - Contraindicated product administered [Unknown]
  - Drug ineffective [Unknown]
